FAERS Safety Report 19173414 (Version 1)
Quarter: 2021Q2

REPORT INFORMATION
  Report Type: Spontaneous
  Country: US (occurrence: US)
  Receive Date: 20210423
  Receipt Date: 20210423
  Transmission Date: 20210717
  Serious: Yes (Hospitalization, Other)
  Sender: FDA-Public Use
  Company Number: US-RECORDATI RARE DISEASE INC.-2021001406

PATIENT
  Age: 22 Year
  Sex: Female

DRUGS (1)
  1. PANHEMATIN [Suspect]
     Active Substance: HEMIN
     Indication: PORPHYRIA
     Dosage: FOUR DOSES
     Route: 042

REACTIONS (4)
  - Porphyria [Unknown]
  - Thrombosis [Unknown]
  - Infusion site pain [Unknown]
  - Iron overload [Unknown]

NARRATIVE: CASE EVENT DATE: 20210406
